FAERS Safety Report 7515923-4 (Version None)
Quarter: 2011Q2

REPORT INFORMATION
  Report Type: 
  Country: None (occurrence: None)
  Receive Date: 20110601
  Receipt Date: 20110519
  Transmission Date: 20111010
  Serious: Yes (Other)
  Sender: FDA-Public Use
  Company Number: LB-AMGEN-LBNSP2011026420

PATIENT
  Age: 54 Year
  Sex: Female

DRUGS (2)
  1. NEULASTIM [Suspect]
     Indication: CHEMOTHERAPY
     Dosage: UNK
  2. ANTINEOPLASTIC AGENTS [Concomitant]

REACTIONS (1)
  - DRUG INEFFECTIVE [None]
